FAERS Safety Report 4408240-2 (Version None)
Quarter: 2004Q3

REPORT INFORMATION
  Report Type: 
  Country: None (occurrence: None)
  Receive Date: 20040726
  Receipt Date: 20040726
  Transmission Date: 20050211
  Serious: Yes (Life-Threatening, Disabling)
  Sender: FDA-Public Use
  Company Number: None

PATIENT
  Sex: Male
  Weight: 63.5036 kg

DRUGS (1)
  1. ACCUTANE [Suspect]
     Indication: ACNE
     Dosage: 40 MG   ONCE DAILY   ORAL
     Route: 048
     Dates: start: 19930915, end: 19940215

REACTIONS (9)
  - ABNORMAL BEHAVIOUR [None]
  - BODY DYSMORPHIC DISORDER [None]
  - DERMATITIS EXFOLIATIVE [None]
  - MENTAL DISABILITY [None]
  - NERVOUS SYSTEM DISORDER [None]
  - OBSESSIVE-COMPULSIVE DISORDER [None]
  - SKIN DISORDER [None]
  - SKIN FRAGILITY [None]
  - SUICIDAL IDEATION [None]
